FAERS Safety Report 24026737 (Version 1)
Quarter: 2024Q2

REPORT INFORMATION
  Report Type: Spontaneous
  Country: GB (occurrence: GB)
  Receive Date: 20240628
  Receipt Date: 20240628
  Transmission Date: 20240716
  Serious: No
  Sender: FDA-Public Use
  Company Number: GB-ROCHE-3550750

PATIENT
  Age: 68 Year

DRUGS (2)
  1. ALECENSA [Suspect]
     Active Substance: ALECTINIB HYDROCHLORIDE
     Indication: Lung carcinoma cell type unspecified stage IV
     Route: 065
  2. LORLATINIB [Concomitant]
     Active Substance: LORLATINIB
     Indication: Lung carcinoma cell type unspecified stage IV

REACTIONS (1)
  - Disease progression [Unknown]
